FAERS Safety Report 24697417 (Version 1)
Quarter: 2024Q4

REPORT INFORMATION
  Report Type: Spontaneous
  Country: KP (occurrence: KP)
  Receive Date: 20241204
  Receipt Date: 20241204
  Transmission Date: 20250115
  Serious: Yes (Other)
  Sender: AMGEN
  Company Number: KP-AMGEN-PRKSP2024236007

PATIENT

DRUGS (6)
  1. PROLIA [Suspect]
     Active Substance: DENOSUMAB
     Indication: Osteoporosis
     Dosage: 60 MILLIGRAM, Q6MO (EVERY 180 DAYS)
     Route: 065
  2. PROLIA [Suspect]
     Active Substance: DENOSUMAB
     Dosage: UNK [WITHIN 30 DAYS EARLY DOSING (ED30)]
     Route: 065
  3. PROLIA [Suspect]
     Active Substance: DENOSUMAB
     Dosage: UNK [WITHIN THE PLANNED TIME OF 180-210 DAYS (REFERENT)]
     Route: 065
  4. PROLIA [Suspect]
     Active Substance: DENOSUMAB
     Dosage: UNK [WITHIN 30-90 DAYS OF DELAYED DOSING (DD90)]
     Route: 065
  5. PROLIA [Suspect]
     Active Substance: DENOSUMAB
     Dosage: UNK [WITHIN 90-180 DAYS OF DELAYED DOSING (DD180)]
     Route: 065
  6. PROLIA [Suspect]
     Active Substance: DENOSUMAB
     Dosage: UNK [LONGER THAN 181 DAYS OF DELAYED DOSING (DD181+)]
     Route: 065

REACTIONS (2)
  - Spinal fracture [Unknown]
  - Fracture [Unknown]
